FAERS Safety Report 14254614 (Version 1)
Quarter: 2017Q4

REPORT INFORMATION
  Report Type: Spontaneous
  Country: US (occurrence: None)
  Receive Date: 20171205
  Receipt Date: 20171205
  Transmission Date: 20180321
  Serious: Yes (Death)
  Sender: FDA-Public Use
  Company Number: None

PATIENT
  Age: 56 Year
  Sex: Male

DRUGS (15)
  1. DEXAMETHASONE. [Concomitant]
     Active Substance: DEXAMETHASONE
  2. DULCOLAX NOS [Concomitant]
     Active Substance: BISACODYL OR DOCUSATE SODIUM
  3. LEVOFLOXACIN. [Concomitant]
     Active Substance: LEVOFLOXACIN
  4. XANAX [Concomitant]
     Active Substance: ALPRAZOLAM
  5. FLORASTOR [Concomitant]
     Active Substance: SACCHAROMYCES CEREVISIAE
  6. MAGNESIUM [Concomitant]
     Active Substance: MAGNESIUM
  7. YERVOY [Concomitant]
     Active Substance: IPILIMUMAB
  8. METOPROLOL. [Concomitant]
     Active Substance: METOPROLOL
  9. OPDIVO [Concomitant]
     Active Substance: NIVOLUMAB
  10. LEVTHYROXINE [Concomitant]
     Active Substance: LEVOTHYROXINE
  11. TRAMADOL. [Concomitant]
     Active Substance: TRAMADOL
  12. CALCIUM [Concomitant]
     Active Substance: CALCIUM
  13. TYLENOL [Concomitant]
     Active Substance: ACETAMINOPHEN
  14. COTELLIC [Suspect]
     Active Substance: COBIMETINIB
     Indication: MALIGNANT MELANOMA
     Route: 048
     Dates: start: 20170912, end: 20171017
  15. TEMOZOLOMIDE. [Concomitant]
     Active Substance: TEMOZOLOMIDE

REACTIONS (1)
  - Disease progression [None]

NARRATIVE: CASE EVENT DATE: 20171017
